FAERS Safety Report 4417666-2 (Version None)
Quarter: 2004Q2

REPORT INFORMATION
  Report Type: 
  Country: None (occurrence: None)
  Receive Date: 20040629
  Receipt Date: 20031230
  Transmission Date: 20050107
  Serious: Yes (Hospitalization, Other)
  Sender: FDA-Public Use
  Company Number: USA031255543

PATIENT
  Age: 50 Year
  Sex: Female
  Weight: 136 kg

DRUGS (2)
  1. HUMULIN N [Suspect]
     Indication: DIABETES MELLITUS
     Dosage: 150 U/DAY
  2. HUMALOG [Suspect]
     Indication: DIABETES MELLITUS
     Dates: start: 19970101

REACTIONS (6)
  - ARTHRITIS [None]
  - DEPRESSION [None]
  - HYPOXIA [None]
  - MOBILITY DECREASED [None]
  - MYOCARDIAL INFARCTION [None]
  - WEIGHT INCREASED [None]
